FAERS Safety Report 5662408-6 (Version None)
Quarter: 2008Q1

REPORT INFORMATION
  Report Type: 
  Country: None (occurrence: None)
  Receive Date: 20080313
  Receipt Date: 20080305
  Transmission Date: 20080703
  Serious: Yes (Hospitalization)
  Sender: FDA-Public Use
  Company Number: US-JNJFOC-20080301891

PATIENT
  Sex: Female
  Weight: 62.14 kg

DRUGS (9)
  1. FENTANYL TRANSDERMAL SYSTEM [Suspect]
     Route: 062
  2. FENTANYL TRANSDERMAL SYSTEM [Suspect]
     Route: 062
  3. FENTANYL TRANSDERMAL SYSTEM [Suspect]
     Indication: LUNG NEOPLASM MALIGNANT
     Route: 062
  4. ANTINEOPLASTIC [Concomitant]
     Indication: LUNG NEOPLASM MALIGNANT
  5. MARIJUANA [Concomitant]
     Route: 048
  6. COUMADIN [Concomitant]
     Indication: THROMBOSIS
     Route: 048
  7. ANTIHYPERTENSIVE [Concomitant]
     Indication: HYPERTENSION
     Route: 048
  8. PHENERGAN HCL [Concomitant]
     Indication: NAUSEA
     Route: 048
  9. OXYCODONE HCL [Concomitant]
     Indication: PAIN
     Dosage: EVERY 6-8 HOURS WHEN NEEDED
     Route: 048

REACTIONS (6)
  - ANOREXIA [None]
  - CHOLELITHIASIS [None]
  - GAIT DISTURBANCE [None]
  - INCOHERENT [None]
  - NAUSEA [None]
  - VOMITING [None]
